FAERS Safety Report 25603672 (Version 1)
Quarter: 2025Q3

REPORT INFORMATION
  Report Type: Spontaneous
  Country: US (occurrence: US)
  Receive Date: 20250725
  Receipt Date: 20250725
  Transmission Date: 20251020
  Serious: Yes (Other)
  Sender: ABBVIE
  Company Number: US-ABBVIE-6383326

PATIENT
  Age: 45 Year
  Sex: Male

DRUGS (2)
  1. UPADACITINIB [Suspect]
     Active Substance: UPADACITINIB
     Indication: Ankylosing spondylitis
     Route: 048
     Dates: end: 20250610
  2. UPADACITINIB [Suspect]
     Active Substance: UPADACITINIB
     Indication: Ankylosing spondylitis
     Route: 048
     Dates: start: 20250411

REACTIONS (18)
  - Spinal operation [Unknown]
  - Diarrhoea [Unknown]
  - Gastrooesophageal reflux disease [Unknown]
  - Hiatus hernia [Unknown]
  - Sinusitis [Unknown]
  - Ageusia [Unknown]
  - Decreased appetite [Unknown]
  - Osteoarthritis [Unknown]
  - Osteoporosis [Unknown]
  - Musculoskeletal disorder [Unknown]
  - Back disorder [Unknown]
  - Fall [Unknown]
  - Ankle fracture [Unknown]
  - Pharyngeal disorder [Unknown]
  - Gallbladder operation [Unknown]
  - Rhinorrhoea [Unknown]
  - Pyrexia [Unknown]
  - Cough [Unknown]

NARRATIVE: CASE EVENT DATE: 20220101
